FAERS Safety Report 8112346-4 (Version None)
Quarter: 2012Q1

REPORT INFORMATION
  Report Type: 
  Country: None (occurrence: None)
  Receive Date: 20120203
  Receipt Date: 20111230
  Transmission Date: 20120608
  Serious: Yes (Other)
  Sender: FDA-Public Use
  Company Number: US-ASTRAZENECA-2012SE00027

PATIENT
  Age: 65 Year
  Sex: Male

DRUGS (11)
  1. FLUOXETINE HYDROCHLORIDE [Concomitant]
     Route: 048
  2. OMEPRAZOLE [Concomitant]
     Route: 048
  3. OXYCODONE/ACETAMINOPHEN [Concomitant]
     Dosage: 5-325 MG DAILY
     Route: 048
  4. REMERON [Concomitant]
     Route: 048
  5. SYNTHROID [Concomitant]
     Route: 048
  6. NIACIN [Concomitant]
     Route: 048
  7. VANDETANIB [Suspect]
     Indication: THYROID CANCER
     Route: 048
  8. MORPHINE SULFATE [Concomitant]
     Route: 048
  9. PREDNISONE TAB [Concomitant]
     Route: 048
  10. GUAIFENESIN [Concomitant]
     Route: 048
  11. ONDASETRON HCL [Concomitant]
     Route: 048

REACTIONS (1)
  - ELECTROCARDIOGRAM QT PROLONGED [None]
